FAERS Safety Report 24996516 (Version 2)
Quarter: 2025Q1

REPORT INFORMATION
  Report Type: Spontaneous
  Country: US (occurrence: US)
  Receive Date: 20250221
  Receipt Date: 20250320
  Transmission Date: 20250408
  Serious: Yes (Other)
  Sender: CSL BEHRING
  Company Number: US-BEH-2025196085

PATIENT
  Age: 74 Year
  Sex: Female

DRUGS (2)
  1. HAEGARDA [Suspect]
     Active Substance: HUMAN C1-ESTERASE INHIBITOR
     Indication: Hereditary angioedema
     Dosage: 3000 IU, BIW
     Route: 058
     Dates: start: 202409
  2. HAEGARDA [Suspect]
     Active Substance: HUMAN C1-ESTERASE INHIBITOR
     Indication: Prophylaxis

REACTIONS (10)
  - Urinary tract obstruction [Unknown]
  - Cholelithiasis [Unknown]
  - Back pain [Unknown]
  - Nausea [Unknown]
  - Chills [Recovering/Resolving]
  - Fatigue [Recovering/Resolving]
  - Hypersomnia [Recovering/Resolving]
  - Peripheral coldness [Recovering/Resolving]
  - Weight decreased [Unknown]
  - Nausea [Unknown]

NARRATIVE: CASE EVENT DATE: 20250204
